FAERS Safety Report 10152028 (Version 2)
Quarter: 2014Q2

REPORT INFORMATION
  Report Type: Spontaneous
  Country: GB (occurrence: GB)
  Receive Date: 20140505
  Receipt Date: 20140604
  Transmission Date: 20141212
  Serious: Yes (Hospitalization, Disabling, Other)
  Sender: FDA-Public Use
  Company Number: GB-SA-2014SA056004

PATIENT
  Sex: Male
  Weight: 65 kg

DRUGS (1)
  1. MYOZYME [Suspect]
     Indication: GLYCOGEN STORAGE DISEASE TYPE II
     Dosage: 1.3 U
     Route: 042
     Dates: start: 2008

REACTIONS (2)
  - Squamous cell carcinoma of pharynx [Not Recovered/Not Resolved]
  - Squamous cell carcinoma [Unknown]
